FAERS Safety Report 8264242-X (Version None)
Quarter: 2012Q2

REPORT INFORMATION
  Report Type: 
  Country: None (occurrence: None)
  Receive Date: 20120406
  Receipt Date: 20120328
  Transmission Date: 20120825
  Serious: Yes (Disabling, Other)
  Sender: FDA-Public Use
  Company Number: FR-JNJFOC-20111207590

PATIENT
  Age: 46 Year
  Sex: Female
  Weight: 70 kg

DRUGS (3)
  1. REMICADE [Suspect]
     Indication: COLITIS ULCERATIVE
     Dosage: DOSE WAS INCREASED
     Route: 042
  2. TRIPHASIL-21 [Concomitant]
     Indication: ORAL CONTRACEPTION
     Route: 048
  3. REMICADE [Suspect]
     Dosage: EVERY 6 TO 8 WEEKS
     Route: 042
     Dates: start: 20100101

REACTIONS (1)
  - LUPUS-LIKE SYNDROME [None]
